FAERS Safety Report 7415139-6 (Version None)
Quarter: 2011Q2

REPORT INFORMATION
  Report Type: 
  Country: None (occurrence: None)
  Receive Date: 20110414
  Receipt Date: 20110404
  Transmission Date: 20111010
  Serious: Yes (Hospitalization, Other)
  Sender: FDA-Public Use
  Company Number: PHHY2011CL26916

PATIENT
  Sex: Male

DRUGS (4)
  1. ATEMPERATOR [Concomitant]
     Dosage: 500 MG, 3 TABLETS PER DAY
  2. LEPONEX [Suspect]
     Indication: SCHIZOPHRENIA
     Dosage: 200 MG
     Dates: start: 20100316
  3. RAVOTRIL [Concomitant]
     Dosage: 02 DF, UNK
  4. SERTRALINE [Concomitant]
     Dosage: 0.5 MG 01 DF,

REACTIONS (3)
  - LARGE INTESTINAL ULCER [None]
  - HAEMATOCHEZIA [None]
  - ABDOMINAL PAIN UPPER [None]
